FAERS Safety Report 14970631 (Version 1)
Quarter: 2018Q2

REPORT INFORMATION
  Report Type: Spontaneous
  Country: ES (occurrence: ES)
  Receive Date: 20180604
  Receipt Date: 20180604
  Transmission Date: 20180711
  Serious: Yes (Other)
  Sender: FDA-Public Use
  Company Number: ES-MYLANLABS-2018M1036926

PATIENT
  Age: 2 Year
  Sex: Female

DRUGS (5)
  1. DEXAMETHASONE. [Suspect]
     Active Substance: DEXAMETHASONE
     Indication: PRODUCT USED FOR UNKNOWN INDICATION
     Route: 065
  2. CLADRIBINE. [Suspect]
     Active Substance: CLADRIBINE
     Indication: XANTHOGRANULOMA
     Dosage: IN A DAILY TWO-HOUR INFUSION FOR 5 DAYS EVERY 3 WEEKS.
     Route: 041
  3. PREDNISONE. [Concomitant]
     Active Substance: PREDNISONE
     Indication: XANTHOGRANULOMA
     Route: 065
  4. VINBLASTINE [Concomitant]
     Active Substance: VINBLASTINE
     Indication: XANTHOGRANULOMA
     Route: 065
  5. CLADRIBINE. [Suspect]
     Active Substance: CLADRIBINE
     Dosage: IN A DAILY TWO-HOUR INFUSION FOR 5 DAYS EVERY 3 WEEKS.
     Route: 041

REACTIONS (5)
  - Adrenal insufficiency [Recovered/Resolved]
  - Thrombocytopenia [Unknown]
  - Anaemia [Unknown]
  - Neutropenia [Unknown]
  - Steroid withdrawal syndrome [Recovered/Resolved]
